FAERS Safety Report 18321055 (Version 26)
Quarter: 2022Q2

REPORT INFORMATION
  Report Type: Report from Study
  Country: NL (occurrence: NL)
  Receive Date: 20200929
  Receipt Date: 20220527
  Transmission Date: 20220721
  Serious: Yes (Other)
  Sender: FDA-Public Use
  Company Number: NL-ABBVIE-20K-114-3488884-00

PATIENT
  Age: 65 Year
  Sex: Male

DRUGS (22)
  1. CARBIDOPA\LEVODOPA [Suspect]
     Active Substance: CARBIDOPA\LEVODOPA
     Indication: Parkinson^s disease
     Dosage: MD: 15.6, CD: 3.1, ED: 4
     Route: 050
     Dates: start: 20200706, end: 202007
  2. CARBIDOPA\LEVODOPA [Suspect]
     Active Substance: CARBIDOPA\LEVODOPA
     Dosage: MD: 15; CD: 4.3; ED: 5.0, REMAINS AT 16 HOURS
     Route: 050
     Dates: start: 202007, end: 202007
  3. CARBIDOPA\LEVODOPA [Suspect]
     Active Substance: CARBIDOPA\LEVODOPA
     Dosage: MD: 14.0 ML; CD: 4.3 ML/H; ED: 5.0
     Route: 050
     Dates: start: 202007, end: 202007
  4. CARBIDOPA\LEVODOPA [Suspect]
     Active Substance: CARBIDOPA\LEVODOPA
     Dosage: MD: 14.0 ML; CD: 4.6 ML/H; ED: 5.0 ML
     Route: 050
     Dates: start: 202007, end: 202007
  5. CARBIDOPA\LEVODOPA [Suspect]
     Active Substance: CARBIDOPA\LEVODOPA
     Dosage: MD: 14.0 ML; CD: 4.8 ML/H; ED: 5.0 ML
     Route: 050
     Dates: start: 202007, end: 2020
  6. CARBIDOPA\LEVODOPA [Suspect]
     Active Substance: CARBIDOPA\LEVODOPA
     Dosage: MD: 14.0 ML; CD: 5.1 ML/H; ED: 5.0 ML
     Route: 050
     Dates: start: 2020, end: 2020
  7. CARBIDOPA\LEVODOPA [Suspect]
     Active Substance: CARBIDOPA\LEVODOPA
     Dosage: MD: 14.0 ML; CD: 5.1 ML/H; ED: 4.5 ML.
     Route: 050
     Dates: start: 2020, end: 2020
  8. CARBIDOPA\LEVODOPA [Suspect]
     Active Substance: CARBIDOPA\LEVODOPA
     Dosage: MD 13.5 ML CD 5.3 ML/H ED 4.5 ML?REMAINS AT 16 HOURS
     Route: 050
     Dates: start: 2020, end: 2020
  9. CARBIDOPA\LEVODOPA [Suspect]
     Active Substance: CARBIDOPA\LEVODOPA
     Dosage: MD 15.0 ML?REMAINS AT 16 HOURS
     Route: 050
     Dates: start: 2020, end: 2020
  10. CARBIDOPA\LEVODOPA [Suspect]
     Active Substance: CARBIDOPA\LEVODOPA
     Dosage: MD 14.4 ML CD 5.3 ML/H ED 4.5 ML?REMAINS AT 16 HOURS
     Route: 050
     Dates: start: 2020
  11. CARBIDOPA\LEVODOPA [Suspect]
     Active Substance: CARBIDOPA\LEVODOPA
     Dosage: MD 14.5 ML CD 5.3 ML/H ED 4.5 ML
     Route: 050
  12. CARBIDOPA\LEVODOPA [Suspect]
     Active Substance: CARBIDOPA\LEVODOPA
     Dosage: MD 13.5 ML CD 5.5ML/H ED 4.5 ML
     Route: 050
  13. CARBIDOPA\LEVODOPA [Suspect]
     Active Substance: CARBIDOPA\LEVODOPA
     Dosage: MD: 13.5 ML, CD: 5.5 ML/H, ED: 4.0 ML
     Route: 050
  14. CARBIDOPA\LEVODOPA [Suspect]
     Active Substance: CARBIDOPA\LEVODOPA
     Dosage: MD: 12.5 ML
     Route: 050
  15. CARBIDOPA\LEVODOPA [Suspect]
     Active Substance: CARBIDOPA\LEVODOPA
     Dosage: MD: 11.5 ML, CD: 5.7 ML/H, ED: 4.0 ML
     Route: 050
  16. CARBIDOPA\LEVODOPA [Suspect]
     Active Substance: CARBIDOPA\LEVODOPA
     Dosage: CD: 5.5 ML/H
     Route: 050
  17. POLYETHYLENE GLYCOLS [Concomitant]
     Active Substance: POLYETHYLENE GLYCOLS
     Indication: Abnormal faeces
  18. FANTOMALT [Concomitant]
     Indication: Weight decreased
  19. MOVICOLON [Concomitant]
     Active Substance: POLYETHYLENE GLYCOL 3350\POTASSIUM CHLORIDE\SODIUM BICARBONATE\SODIUM CHLORIDE
     Indication: Abnormal faeces
  20. MELATONIN [Concomitant]
     Active Substance: MELATONIN
     Indication: Product used for unknown indication
  21. BENSERAZIDE HYDROCHLORIDE\LEVODOPA [Concomitant]
     Active Substance: BENSERAZIDE HYDROCHLORIDE\LEVODOPA
     Indication: Parkinson^s disease
     Dosage: ONCE AT 03:00 AM IF NEEDED
     Route: 048
  22. BENSERAZIDE HYDROCHLORIDE\LEVODOPA [Concomitant]
     Active Substance: BENSERAZIDE HYDROCHLORIDE\LEVODOPA
     Indication: Parkinson^s disease
     Dosage: RETARD, 4 TIMES 30 MINUTES BEFORE DISCONNECTING THE PUMP
     Route: 048

REACTIONS (84)
  - Cataract [Unknown]
  - Device dislocation [Unknown]
  - Tension [Recovered/Resolved]
  - Stress [Recovered/Resolved]
  - Speech sound disorder [Not Recovered/Not Resolved]
  - Feeling abnormal [Not Recovered/Not Resolved]
  - Speech disorder [Not Recovered/Not Resolved]
  - Panic attack [Unknown]
  - Middle insomnia [Not Recovered/Not Resolved]
  - Product storage error [Recovered/Resolved]
  - Food interaction [Recovered/Resolved]
  - Muscle rigidity [Not Recovered/Not Resolved]
  - Reduced facial expression [Not Recovered/Not Resolved]
  - Food intolerance [Recovered/Resolved]
  - Bowel movement irregularity [Recovered/Resolved]
  - Medical device discomfort [Unknown]
  - Adverse food reaction [Unknown]
  - Feeling abnormal [Not Recovered/Not Resolved]
  - Panic reaction [Not Recovered/Not Resolved]
  - Gait disturbance [Not Recovered/Not Resolved]
  - Tremor [Recovered/Resolved]
  - Euphoric mood [Recovered/Resolved]
  - On and off phenomenon [Recovered/Resolved]
  - Stoma site pain [Recovered/Resolved]
  - Stoma site discharge [Not Recovered/Not Resolved]
  - Bradykinesia [Not Recovered/Not Resolved]
  - Dyskinesia [Recovered/Resolved]
  - Insomnia [Recovered/Resolved]
  - Stoma site erythema [Recovered/Resolved]
  - Stoma site erythema [Recovered/Resolved]
  - Hyperkinesia [Recovered/Resolved]
  - Unevaluable event [Not Recovered/Not Resolved]
  - Vomiting [Not Recovered/Not Resolved]
  - Parkinson^s disease [Not Recovered/Not Resolved]
  - Therapeutic product effect decreased [Recovered/Resolved]
  - Unevaluable event [Recovered/Resolved]
  - Medical device site vesicles [Recovered/Resolved]
  - Device dislocation [Recovered/Resolved]
  - Stoma site induration [Recovered/Resolved]
  - Anxiety [Not Recovered/Not Resolved]
  - Restlessness [Not Recovered/Not Resolved]
  - Abnormal dreams [Not Recovered/Not Resolved]
  - Stoma site irritation [Recovered/Resolved]
  - Fibroma [Recovering/Resolving]
  - Pain [Not Recovered/Not Resolved]
  - Feeling abnormal [Recovered/Resolved]
  - Abnormal faeces [Recovered/Resolved]
  - Drug ineffective [Recovered/Resolved]
  - Emotional disorder [Not Recovered/Not Resolved]
  - Impatience [Not Recovered/Not Resolved]
  - Asthenia [Unknown]
  - Unevaluable event [Unknown]
  - On and off phenomenon [Not Recovered/Not Resolved]
  - Bradykinesia [Not Recovered/Not Resolved]
  - Malaise [Recovering/Resolving]
  - Dyskinesia [Recovered/Resolved]
  - Tension [Not Recovered/Not Resolved]
  - Stress [Not Recovered/Not Resolved]
  - Feeling abnormal [Recovered/Resolved]
  - Loss of personal independence in daily activities [Not Recovered/Not Resolved]
  - Unevaluable event [Unknown]
  - Speech disorder [Not Recovered/Not Resolved]
  - Tremor [Recovered/Resolved]
  - Polyneuropathy [Not Recovered/Not Resolved]
  - Hypoaesthesia [Not Recovered/Not Resolved]
  - Paraesthesia [Not Recovered/Not Resolved]
  - Feeling abnormal [Recovered/Resolved]
  - Memory impairment [Unknown]
  - Disturbance in attention [Unknown]
  - Aphasia [Unknown]
  - Device issue [Unknown]
  - Unevaluable event [Unknown]
  - Agitation [Recovered/Resolved]
  - Incorrect dose administered [Recovered/Resolved]
  - Sitting disability [Not Recovered/Not Resolved]
  - Gait disturbance [Unknown]
  - Stoma site discharge [Not Recovered/Not Resolved]
  - Hyperkinesia [Recovered/Resolved]
  - Feeling abnormal [Recovered/Resolved]
  - Unevaluable event [Not Recovered/Not Resolved]
  - Feeling abnormal [Recovering/Resolving]
  - On and off phenomenon [Unknown]
  - Extra dose administered [Not Recovered/Not Resolved]
  - Therapeutic product effect incomplete [Not Recovered/Not Resolved]

NARRATIVE: CASE EVENT DATE: 20200101
